FAERS Safety Report 16328581 (Version 1)
Quarter: 2019Q2

REPORT INFORMATION
  Report Type: Spontaneous
  Country: CN (occurrence: CN)
  Receive Date: 20190518
  Receipt Date: 20190518
  Transmission Date: 20190711
  Serious: Yes (Death)
  Sender: FDA-Public Use
  Company Number: PHHY2019CN112670

PATIENT
  Age: 59 Year
  Sex: Male

DRUGS (2)
  1. EVEROLIMUS. [Suspect]
     Active Substance: EVEROLIMUS
     Indication: TRANSITIONAL CELL CARCINOMA
     Dosage: 10 MG, QD
     Route: 048
     Dates: start: 20170729
  2. EVEROLIMUS. [Suspect]
     Active Substance: EVEROLIMUS
     Dosage: 250 MG, BID
     Route: 048
     Dates: start: 20170903

REACTIONS (3)
  - Product use in unapproved indication [Unknown]
  - General physical health deterioration [Fatal]
  - Pain [Unknown]
